FAERS Safety Report 18169396 (Version 2)
Quarter: 2020Q3

REPORT INFORMATION
  Report Type: Spontaneous
  Country: US (occurrence: US)
  Receive Date: 20200819
  Receipt Date: 20200826
  Transmission Date: 20201103
  Serious: Yes (Disabling, Other)
  Sender: FDA-Public Use
  Company Number: US-AMGEN-USASP2020133474

PATIENT
  Age: 63 Year
  Sex: Female
  Weight: 72.57 kg

DRUGS (1)
  1. ENBREL [Suspect]
     Active Substance: ETANERCEPT
     Indication: RHEUMATOID ARTHRITIS
     Dosage: 50 MG, WEEKLY
     Route: 065
     Dates: start: 2010, end: 202008

REACTIONS (2)
  - Drug ineffective [Not Recovered/Not Resolved]
  - Condition aggravated [Not Recovered/Not Resolved]

NARRATIVE: CASE EVENT DATE: 2019
